FAERS Safety Report 19719029 (Version 2)
Quarter: 2021Q3

REPORT INFORMATION
  Report Type: Spontaneous
  Country: US (occurrence: US)
  Receive Date: 20210818
  Receipt Date: 20210902
  Transmission Date: 20211014
  Serious: Yes (Death, Hospitalization, Other)
  Sender: FDA-Public Use
  Company Number: US-INCYTE CORPORATION-2021IN006501

PATIENT

DRUGS (2)
  1. JAKAFI [Suspect]
     Active Substance: RUXOLITINIB
     Indication: CHRONIC GRAFT VERSUS HOST DISEASE
     Dosage: 10 MILLIGRAM, BID
     Route: 048
     Dates: start: 20200507, end: 20210801
  2. JAKAFI [Suspect]
     Active Substance: RUXOLITINIB
     Indication: AGRANULOCYTOSIS
     Dosage: 10 MILLIGRAM, BID
     Route: 048
     Dates: start: 20210616, end: 20210729

REACTIONS (9)
  - Death [Fatal]
  - Fall [Not Recovered/Not Resolved]
  - Mental status changes postoperative [Unknown]
  - Hip fracture [Not Recovered/Not Resolved]
  - Wrist fracture [Not Recovered/Not Resolved]
  - Transient ischaemic attack [Unknown]
  - Lacunar infarction [Not Recovered/Not Resolved]
  - Ischaemic stroke [Not Recovered/Not Resolved]
  - Off label use [Unknown]

NARRATIVE: CASE EVENT DATE: 20200507
